FAERS Safety Report 5227406-5 (Version None)
Quarter: 2007Q1

REPORT INFORMATION
  Report Type: 
  Country: None (occurrence: None)
  Receive Date: 20070202
  Receipt Date: 20070124
  Transmission Date: 20070707
  Serious: Yes (Death, Hospitalization, Other)
  Sender: FDA-Public Use
  Company Number: DE-ELI_LILLY_AND_COMPANY-DE200701005702

PATIENT
  Age: 67 Year
  Sex: Male

DRUGS (6)
  1. GEMZAR [Suspect]
     Indication: METASTASIS
  2. CISPLATIN [Concomitant]
     Indication: METASTASIS
  3. CLOPIDOGREL [Concomitant]
     Indication: ANTICOAGULANT THERAPY
     Dosage: 600 MG, UNK
     Route: 048
  4. CLOPIDOGREL [Concomitant]
     Dosage: 75 MG, DAILY (1/D)
  5. ASPIRIN [Concomitant]
     Indication: ANTICOAGULANT THERAPY
     Dosage: 500 MG, UNK
     Route: 042
  6. ASPIRIN [Concomitant]
     Dosage: 100 MG, UNK

REACTIONS (6)
  - BONE MARROW FAILURE [None]
  - CARDIAC ARREST [None]
  - CORONARY ARTERY DISEASE [None]
  - MYOCARDIAL INFARCTION [None]
  - THROMBOCYTOPENIA [None]
  - THROMBOSIS IN DEVICE [None]
